FAERS Safety Report 5019403-X (Version None)
Quarter: 2006Q2

REPORT INFORMATION
  Report Type: 
  Country: None (occurrence: None)
  Receive Date: 20060531
  Receipt Date: 20060526
  Transmission Date: 20061013
  Serious: Yes (Other)
  Sender: FDA-Public Use
  Company Number: 200610538GDS

PATIENT
  Age: 65 Year
  Sex: Female

DRUGS (2)
  1. CIPROFLOXACIN HCL [Suspect]
     Dosage: ORAL
     Route: 048
  2. THEO-DUR [Suspect]
     Dosage: 300 MG, BID; ORAL
     Route: 048

REACTIONS (11)
  - ABDOMINAL PAIN [None]
  - CHEST PAIN [None]
  - CONFUSIONAL STATE [None]
  - COORDINATION ABNORMAL [None]
  - DELIRIUM [None]
  - DRUG INTERACTION [None]
  - ELECTROCARDIOGRAM CHANGE [None]
  - HEADACHE [None]
  - HYPOKALAEMIA [None]
  - HYPOVOLAEMIA [None]
  - NAUSEA [None]
